FAERS Safety Report 11440190 (Version 1)
Quarter: 2015Q3

REPORT INFORMATION
  Report Type: Spontaneous
  Country: US (occurrence: None)
  Receive Date: 20150831
  Receipt Date: 20150831
  Transmission Date: 20151125
  Serious: No
  Sender: FDA-Public Use
  Company Number: None

PATIENT
  Age: 63 Year
  Sex: Female

DRUGS (4)
  1. DIALYSIS [Concomitant]
     Active Substance: UNSPECIFIED INGREDIENT
  2. VIEKIRA PAK [Suspect]
     Active Substance: DASABUVIR\OMBITASVIR\PARITAPREVIR\RITONAVIR
     Indication: HEPATITIS C
     Dosage: QD ORAL
     Route: 048
  3. RIBAVIRAN [Suspect]
     Active Substance: RIBAVIRIN
     Indication: HEPATITIS C
     Dosage: 1 PILL?TUES, THURS, SAT?ORAL
     Route: 048
  4. CARVEDIOL [Concomitant]
     Active Substance: CARVEDILOL

REACTIONS (2)
  - Haematochezia [None]
  - Blood count abnormal [None]

NARRATIVE: CASE EVENT DATE: 20150828
